FAERS Safety Report 10560360 (Version 1)
Quarter: 2014Q4

REPORT INFORMATION
  Report Type: Spontaneous
  Country: US (occurrence: None)
  Receive Date: 20141031
  Receipt Date: 20141031
  Transmission Date: 20150529
  Serious: No
  Sender: FDA-Public Use
  Company Number: None

PATIENT
  Age: 57 Year
  Sex: Female
  Weight: 84 kg

DRUGS (1)
  1. DENOSUMAB [Suspect]
     Active Substance: DENOSUMAB
     Route: 058
     Dates: start: 20140402, end: 20140402

REACTIONS (5)
  - Abscess oral [None]
  - Pain in jaw [None]
  - Osteonecrosis of jaw [None]
  - Tooth extraction [None]
  - Swelling face [None]

NARRATIVE: CASE EVENT DATE: 20140402
